FAERS Safety Report 6538485-7 (Version None)
Quarter: 2010Q1

REPORT INFORMATION
  Report Type: 
  Country: None (occurrence: None)
  Receive Date: 20100114
  Receipt Date: 20100112
  Transmission Date: 20100710
  Serious: Yes (Hospitalization, Other)
  Sender: FDA-Public Use
  Company Number: US-MERCK-0907USA02923

PATIENT
  Age: 59 Year
  Sex: Female

DRUGS (1)
  1. FOSAMAX [Suspect]
     Indication: OSTEOPOROSIS
     Route: 048
     Dates: start: 20001101, end: 20020101

REACTIONS (15)
  - BLOOD CHOLESTEROL INCREASED [None]
  - DENTAL CARIES [None]
  - EDENTULOUS [None]
  - HERNIA [None]
  - IMPAIRED HEALING [None]
  - INTESTINAL OBSTRUCTION [None]
  - LIMB INJURY [None]
  - ORAL INFECTION [None]
  - OSTEONECROSIS [None]
  - OSTEORADIONECROSIS [None]
  - PNEUMONIA [None]
  - SLEEP APNOEA SYNDROME [None]
  - STOMATITIS [None]
  - TOOTH DISORDER [None]
  - UTERINE DISORDER [None]
